FAERS Safety Report 8273072-4 (Version None)
Quarter: 2012Q2

REPORT INFORMATION
  Report Type: 
  Country: None (occurrence: None)
  Receive Date: 20120411
  Receipt Date: 20120406
  Transmission Date: 20120825
  Serious: No
  Sender: FDA-Public Use
  Company Number: US-PFIZER INC-2012087528

PATIENT
  Sex: Female
  Weight: 56.236 kg

DRUGS (1)
  1. PREMARIN [Suspect]
     Dosage: 1 OZ, 3X/WEEK
     Route: 067

REACTIONS (4)
  - POOR QUALITY DRUG ADMINISTERED [None]
  - IRRITABILITY [None]
  - PRURITUS [None]
  - ERYTHEMA [None]
